FAERS Safety Report 24607325 (Version 1)
Quarter: 2024Q4

REPORT INFORMATION
  Report Type: Spontaneous
  Country: US (occurrence: US)
  Receive Date: 20241112
  Receipt Date: 20241112
  Transmission Date: 20250115
  Serious: Yes (Other)
  Sender: COOPERSURGICAL
  Company Number: US-COOPERSURGICAL, INC.-2024CPS003352

PATIENT
  Sex: Female
  Weight: 102.49 kg

DRUGS (8)
  1. PARAGARD T 380A [Suspect]
     Active Substance: COPPER
     Indication: Contraception
     Dosage: UNK
     Route: 015
     Dates: start: 20101027
  2. BRINTELLIX [Concomitant]
     Active Substance: VORTIOXETINE HYDROBROMIDE
     Dosage: UNK
     Dates: start: 201501, end: 201612
  3. CYMBALTA [Concomitant]
     Active Substance: DULOXETINE HYDROCHLORIDE
     Dosage: UNK
     Dates: start: 200701
  4. FANAPT [Concomitant]
     Active Substance: ILOPERIDONE
     Indication: Bipolar disorder
     Dosage: UNK
     Dates: start: 201201
  5. PROPRANOLOL [Concomitant]
     Active Substance: PROPRANOLOL HYDROCHLORIDE
     Indication: Bipolar disorder
     Dosage: UNK
     Dates: start: 201101
  6. LAMICTAL [Concomitant]
     Active Substance: LAMOTRIGINE
     Indication: Bipolar disorder
     Dosage: UNK
     Dates: start: 201101
  7. LITHIUM [Concomitant]
     Active Substance: LITHIUM
     Indication: Bipolar disorder
     Dosage: UNK
     Dates: start: 200801
  8. NEURONTIN [Concomitant]
     Active Substance: GABAPENTIN
     Indication: Bipolar disorder
     Dosage: UNK
     Dates: start: 201701, end: 201912

REACTIONS (12)
  - Reproductive complication associated with device [Not Recovered/Not Resolved]
  - Concussion [Unknown]
  - Thyroid disorder [Unknown]
  - Device breakage [Recovered/Resolved]
  - Foreign body in urogenital tract [Recovered/Resolved]
  - Complication of device removal [Recovered/Resolved]
  - Road traffic accident [Recovered/Resolved]
  - Obesity [Unknown]
  - Device dislocation [Recovered/Resolved]
  - Pain [Recovered/Resolved]
  - Pelvic pain [Recovered/Resolved]
  - Muscle spasms [Recovered/Resolved]

NARRATIVE: CASE EVENT DATE: 20140101
